FAERS Safety Report 7727592-9 (Version None)
Quarter: 2011Q3

REPORT INFORMATION
  Report Type: 
  Country: None (occurrence: None)
  Receive Date: 20110902
  Receipt Date: 20110831
  Transmission Date: 20111222
  Serious: Yes (Hospitalization)
  Sender: FDA-Public Use
  Company Number: IE-PFIZER INC-2011140847

PATIENT
  Age: 65 Year
  Sex: Male

DRUGS (7)
  1. ACETAMINOPHEN AND TRAMADOL HCL [Concomitant]
     Indication: PAIN
     Dosage: 2 DF, 3X/DAY
     Dates: start: 20100319, end: 20110524
  2. PLAVIX [Concomitant]
     Dosage: 75 MG, 1X/DAY
  3. LIPITOR [Concomitant]
     Dosage: 10 MG, 1X/DAY
  4. LYRICA [Suspect]
     Indication: PAIN
     Dosage: 2 DF, 3X/DAY
     Route: 048
     Dates: start: 20110310, end: 20110524
  5. BETAHISTINE [Concomitant]
     Dosage: 16 MG, 1X/DAY
  6. TRAVATAN [Concomitant]
     Dosage: UNK; 2X/DAY
  7. ACETYLSALICYLIC ACID [Concomitant]
     Dosage: 75 MG, 1X/DAY

REACTIONS (7)
  - NAUSEA [None]
  - RETCHING [None]
  - ABDOMINAL PAIN [None]
  - CHROMATURIA [None]
  - DECREASED APPETITE [None]
  - VOMITING [None]
  - MALAISE [None]
